FAERS Safety Report 7245996-8 (Version None)
Quarter: 2011Q1

REPORT INFORMATION
  Report Type: 
  Country: None (occurrence: None)
  Receive Date: 20110126
  Receipt Date: 20110119
  Transmission Date: 20110831
  Serious: Yes (Hospitalization)
  Sender: FDA-Public Use
  Company Number: US-US-EMD SERONO, INC.-7037398

PATIENT
  Sex: Female
  Weight: 57 kg

DRUGS (1)
  1. REBIF [Suspect]
     Indication: MULTIPLE SCLEROSIS
     Route: 058
     Dates: start: 20081124, end: 20101201

REACTIONS (3)
  - PNEUMONIA VIRAL [None]
  - ACUTE RESPIRATORY DISTRESS SYNDROME [None]
  - LIVER FUNCTION TEST ABNORMAL [None]
